FAERS Safety Report 4470831-0 (Version None)
Quarter: 2004Q4

REPORT INFORMATION
  Report Type: 
  Country: None (occurrence: None)
  Receive Date: 20041005
  Receipt Date: 20040922
  Transmission Date: 20050328
  Serious: Yes (Hospitalization)
  Sender: FDA-Public Use
  Company Number: 2004070771

PATIENT
  Age: 62 Year
  Sex: Female

DRUGS (4)
  1. ZIPRASIDONE (CAPS) (ZIPRASIDONE) [Suspect]
     Indication: AGITATION
     Dosage: 40 MG (20 MG , 2 IN 1 D)
  2. CARBAMAZEPINE [Suspect]
     Indication: AGITATION
     Dosage: 400 MG (200 MG, 2 IN 1 D)
  3. GABAPENTIN [Suspect]
     Indication: AGITATION
     Dosage: 900 MG (300 MG IN 1 D)
  4. ESCITALOPRAM (ESCITALOPRAM) [Suspect]
     Indication: AGITATION
     Dosage: 10 MG (10 MG, 1 IN 1 D)

REACTIONS (12)
  - ABNORMAL BEHAVIOUR [None]
  - AGGRESSION [None]
  - AGITATION [None]
  - CONDITION AGGRAVATED [None]
  - CONFUSIONAL STATE [None]
  - DISORIENTATION [None]
  - DISTURBANCE IN ATTENTION [None]
  - DRUG INEFFECTIVE [None]
  - HALLUCINATIONS, MIXED [None]
  - INCOHERENT [None]
  - MOOD SWINGS [None]
  - SPEECH DISORDER [None]
